FAERS Safety Report 10216072 (Version 1)
Quarter: 2014Q2

REPORT INFORMATION
  Report Type: Spontaneous
  Country: US (occurrence: None)
  Receive Date: 20140603
  Receipt Date: 20140603
  Transmission Date: 20141212
  Serious: Yes (Life-Threatening, Hospitalization, Disabling)
  Sender: FDA-Public Use
  Company Number: None

PATIENT
  Age: 23 Year
  Sex: Female
  Weight: 47.63 kg

DRUGS (1)
  1. VENLAFAXINE [Suspect]
     Indication: BIPOLAR DISORDER
     Dosage: VARIOUS, VARIOUS, TAKEN BY MOUTH
     Route: 048
     Dates: start: 20130107, end: 20130510

REACTIONS (19)
  - Dyspnoea [None]
  - Feeling abnormal [None]
  - Panic attack [None]
  - Muscle tightness [None]
  - Chest discomfort [None]
  - Cognitive disorder [None]
  - Insomnia [None]
  - Heart rate increased [None]
  - Aphasia [None]
  - Paranoia [None]
  - Derealisation [None]
  - Weight decreased [None]
  - Fear of eating [None]
  - Anger [None]
  - Poor personal hygiene [None]
  - Asthenia [None]
  - Paraesthesia [None]
  - Activities of daily living impaired [None]
  - Headache [None]
